FAERS Safety Report 9848379 (Version 2)
Quarter: 2014Q1

REPORT INFORMATION
  Report Type: Spontaneous
  Country: US (occurrence: None)
  Receive Date: 20131226
  Receipt Date: 20140130
  Transmission Date: 20141002
  Serious: Yes (Other)
  Sender: FDA-Public Use
  Company Number: PHEH2013US018530

PATIENT
  Age: 79 Year
  Sex: Male

DRUGS (3)
  1. ARCAPTA [Suspect]
  2. SPIRIVA (TIOTROPIUM BROMIDE) (TIOTROPIUM BROMIDE) [Concomitant]
  3. NEBICIP (NEBIVOLOL HYDROCHLORIDE) [Concomitant]

REACTIONS (7)
  - Dyspepsia [None]
  - Sensation of heaviness [None]
  - Nausea [None]
  - Headache [None]
  - Muscle spasms [None]
  - Device malfunction [None]
  - Pain in extremity [None]
